FAERS Safety Report 9370581 (Version 1)
Quarter: 2013Q2

REPORT INFORMATION
  Report Type: Spontaneous
  Country: GB (occurrence: GB)
  Receive Date: 20130626
  Receipt Date: 20130626
  Transmission Date: 20140414
  Serious: Yes (Other)
  Sender: FDA-Public Use
  Company Number: GB-TEVA-413767ISR

PATIENT
  Age: 72 Year
  Sex: Male
  Weight: 98 kg

DRUGS (18)
  1. METFORMIN [Suspect]
     Indication: TYPE 2 DIABETES MELLITUS
     Dosage: 1700 MILLIGRAM DAILY;
     Route: 048
     Dates: start: 20010215, end: 20130420
  2. LOSARTAN [Concomitant]
     Dosage: 50 MILLIGRAM DAILY;
  3. METHYLDOPA [Concomitant]
     Dosage: 500 MILLIGRAM DAILY;
  4. INDAPAMIDE [Concomitant]
     Dosage: 2.5 MILLIGRAM DAILY; TAKEN IN THE MORNING.
  5. EXENATIDE [Concomitant]
     Dosage: 20 MICROGRAM DAILY;
  6. CORACTEN XL [Concomitant]
     Dosage: 60 MILLIGRAM DAILY;
  7. ASPIRIN [Concomitant]
     Dosage: 75 MILLIGRAM DAILY;
  8. ATENOLOL [Concomitant]
     Dosage: 50 MILLIGRAM DAILY;
  9. QUININE BISULPHATE [Concomitant]
     Dosage: 300 MILLIGRAM DAILY; TAKEN AT NIGHT.
  10. SIMVASTATIN [Concomitant]
     Dosage: 40 MILLIGRAM DAILY; TAKEN AT NIGHT.
  11. OMEPRAZOLE [Concomitant]
     Dosage: 20 MILLIGRAM DAILY;
  12. SOLIFENACIN [Concomitant]
     Dosage: 5 MILLIGRAM DAILY;
  13. LEVOTHYROXINE [Concomitant]
     Dosage: 100 MICROGRAM DAILY; TAKEN IN THE MORNING.
  14. SALBUTAMOL [Concomitant]
     Route: 055
  15. LOPERAMIDE [Concomitant]
     Dosage: 8 MILLIGRAM DAILY; FOR ONE DAY.
  16. FLUCLOXACILLIN [Concomitant]
     Dosage: 2000 MILLIGRAM DAILY; FOR SEVEN DAYS.
  17. CLARITHROMYCIN [Concomitant]
     Dosage: 1000 MILLIGRAM DAILY; FOR SEVEN DAYS.
  18. PREDNISOLONE [Concomitant]
     Dosage: 30 MILLIGRAM DAILY; FOR SEVEN DAYS.

REACTIONS (10)
  - Renal failure acute [Recovered/Resolved]
  - Anuria [Unknown]
  - Blood creatinine abnormal [Unknown]
  - Dehydration [Unknown]
  - Diarrhoea [Unknown]
  - Malaise [Unknown]
  - Azotaemia [Unknown]
  - Vomiting [Unknown]
  - Acidosis [Unknown]
  - Drug level above therapeutic [Unknown]
